FAERS Safety Report 4592935-4 (Version None)
Quarter: 2005Q1

REPORT INFORMATION
  Report Type: 
  Country: None (occurrence: None)
  Receive Date: 20050228
  Receipt Date: 20050119
  Transmission Date: 20050727
  Serious: Yes (Hospitalization)
  Sender: FDA-Public Use
  Company Number: LU-GLAXOSMITHKLINE-B0365718A

PATIENT
  Age: 69 Year
  Sex: Female
  Weight: 71 kg

DRUGS (2)
  1. ZINNAT [Suspect]
     Indication: CYSTITIS
     Dosage: 500MG PER DAY
     Route: 048
     Dates: start: 20041224, end: 20041224
  2. METHOTREXATE [Concomitant]
     Indication: RHEUMATOID ARTHRITIS
     Route: 048
     Dates: start: 19950101

REACTIONS (4)
  - HAEMATEMESIS [None]
  - MALLORY-WEISS SYNDROME [None]
  - RECTAL HAEMORRHAGE [None]
  - VOMITING [None]
